FAERS Safety Report 7177746-8 (Version None)
Quarter: 2010Q4

REPORT INFORMATION
  Report Type: 
  Country: None (occurrence: None)
  Receive Date: 20101220
  Receipt Date: 20100601
  Transmission Date: 20110411
  Serious: Yes (Other)
  Sender: FDA-Public Use
  Company Number: EG-GENZYME-CERZ-1001707

PATIENT
  Age: 15 Year
  Sex: Female

DRUGS (1)
  1. CEREZYME [Suspect]
     Indication: GAUCHER'S DISEASE
     Dosage: UNK
     Route: 042
     Dates: start: 20020101

REACTIONS (9)
  - BACK PAIN [None]
  - BONE PAIN [None]
  - DYSARTHRIA [None]
  - FATIGUE [None]
  - HAEMOGLOBIN DECREASED [None]
  - HEPATOSPLENOMEGALY [None]
  - MENTAL IMPAIRMENT [None]
  - PLATELET COUNT DECREASED [None]
  - SPEECH DISORDER [None]
